FAERS Safety Report 20349737 (Version 8)
Quarter: 2022Q3

REPORT INFORMATION
  Report Type: Report from Study
  Country: US (occurrence: US)
  Receive Date: 20220119
  Receipt Date: 20220825
  Transmission Date: 20221027
  Serious: Yes (Other)
  Sender: FDA-Public Use
  Company Number: US-NOVARTISPH-NVSC2022US010222

PATIENT
  Sex: Female

DRUGS (1)
  1. ENTRESTO [Suspect]
     Active Substance: SACUBITRIL\VALSARTAN
     Indication: Product used for unknown indication
     Dosage: 1 DOSAGE FORM, BID (24/26MG)
     Route: 065
     Dates: start: 202112

REACTIONS (12)
  - Cataract [Unknown]
  - Eye haemorrhage [Unknown]
  - Carotid artery stenosis [Unknown]
  - Weight fluctuation [Unknown]
  - Upper-airway cough syndrome [Unknown]
  - Stress [Recovering/Resolving]
  - Conjunctival oedema [Unknown]
  - Dry eye [Unknown]
  - Extrasystoles [Unknown]
  - Hypotension [Unknown]
  - Cough [Unknown]
  - Asthenia [Unknown]
